FAERS Safety Report 19828549 (Version 1)
Quarter: 2021Q3

REPORT INFORMATION
  Report Type: Spontaneous
  Country: JP (occurrence: JP)
  Receive Date: 20210914
  Receipt Date: 20210914
  Transmission Date: 20211014
  Serious: Yes (Other)
  Sender: FDA-Public Use
  Company Number: JP-SA-2021SA299952

PATIENT
  Age: 50 Year
  Sex: Female

DRUGS (1)
  1. ELPLAT [Suspect]
     Active Substance: OXALIPLATIN
     Dosage: INJECTION

REACTIONS (2)
  - Neuropathy peripheral [Unknown]
  - Genital haemorrhage [Unknown]
